FAERS Safety Report 18884550 (Version 1)
Quarter: 2021Q1

REPORT INFORMATION
  Report Type: Spontaneous
  Country: GH (occurrence: GH)
  Receive Date: 20210212
  Receipt Date: 20210212
  Transmission Date: 20210420
  Serious: Yes (Other)
  Sender: FDA-Public Use
  Company Number: GH-SUN PHARMACEUTICAL INDUSTRIES LTD-2021R1-280328

PATIENT
  Age: 33 Year
  Sex: Female

DRUGS (3)
  1. FLOUROURACIL [Suspect]
     Active Substance: FLUOROURACIL
     Indication: INVASIVE BREAST CARCINOMA
     Dosage: UNK
     Route: 065
  2. DOXORUBICIN [Suspect]
     Active Substance: DOXORUBICIN
     Indication: INVASIVE BREAST CARCINOMA
     Dosage: UNK
     Route: 065
  3. CYCLOPHOSPHAMIDE. [Suspect]
     Active Substance: CYCLOPHOSPHAMIDE
     Indication: INVASIVE BREAST CARCINOMA
     Dosage: UNK
     Route: 065

REACTIONS (6)
  - Depressed level of consciousness [Unknown]
  - Speech disorder [Unknown]
  - Exposure during pregnancy [Unknown]
  - Generalised tonic-clonic seizure [Unknown]
  - Premature delivery [Unknown]
  - Nystagmus [Unknown]
